FAERS Safety Report 13557383 (Version 1)
Quarter: 2017Q2

REPORT INFORMATION
  Report Type: Spontaneous
  Country: US (occurrence: US)
  Receive Date: 20170518
  Receipt Date: 20170518
  Transmission Date: 20170830
  Serious: No
  Sender: FDA-Public Use
  Company Number: US-MYLANLABS-2016M1047195

PATIENT
  Age: 73 Year
  Sex: Male
  Weight: 81.63 kg

DRUGS (11)
  1. OLUX-E [Suspect]
     Active Substance: CLOBETASOL PROPIONATE
     Indication: DERMATITIS
     Dosage: UNK, ONCE DAILY AS NEEDED
     Route: 061
     Dates: start: 201405
  2. OLUX-E [Concomitant]
     Active Substance: CLOBETASOL PROPIONATE
     Indication: DERMATITIS
  3. COUMADIN [Concomitant]
     Active Substance: WARFARIN SODIUM
     Dosage: UNK
  4. KEPPRA [Concomitant]
     Active Substance: LEVETIRACETAM
     Dosage: UNK
  5. DIOVAN [Concomitant]
     Active Substance: VALSARTAN
     Dosage: UNK
  6. CRESTOR [Concomitant]
     Active Substance: ROSUVASTATIN CALCIUM
     Dosage: UNK
  7. FLOMAX [Concomitant]
     Active Substance: TAMSULOSIN HYDROCHLORIDE
     Dosage: UNK
  8. COENZYME Q10 [Concomitant]
     Active Substance: UBIDECARENONE
     Dosage: UNK
  9. LEXAPRO [Concomitant]
     Active Substance: ESCITALOPRAM OXALATE
     Dosage: UNK
  10. NEURONTIN [Concomitant]
     Active Substance: GABAPENTIN
     Dosage: UNK
  11. VITAMIN B6 [Concomitant]
     Active Substance: PYRIDOXINE HYDROCHLORIDE
     Dosage: UNK

REACTIONS (3)
  - Product physical issue [Recovered/Resolved]
  - Product substitution issue [Recovered/Resolved]
  - Application site burn [Recovered/Resolved]

NARRATIVE: CASE EVENT DATE: 2014
